FAERS Safety Report 9419819 (Version 1)
Quarter: 2013Q3

REPORT INFORMATION
  Report Type: Spontaneous
  Country: US (occurrence: None)
  Receive Date: 20130723
  Receipt Date: 20130723
  Transmission Date: 20140515
  Serious: Yes (Hospitalization)
  Sender: FDA-Public Use
  Company Number: ADR-2013-01205

PATIENT
  Age: 67 Year
  Sex: Female

DRUGS (2)
  1. BACLOFEN INTRATHECAL [Suspect]
     Indication: MUSCLE SPASTICITY
  2. OXYCONTIN [Suspect]
     Dosage: 20MG/4HRS

REACTIONS (10)
  - Cerebrovascular accident [None]
  - Pain in extremity [None]
  - Overdose [None]
  - Pneumonia [None]
  - Muscle spasms [None]
  - Drug hypersensitivity [None]
  - Therapeutic response decreased [None]
  - Sepsis [None]
  - Muscle tightness [None]
  - Device issue [None]
